FAERS Safety Report 6144552-2 (Version None)
Quarter: 2009Q2

REPORT INFORMATION
  Report Type: 
  Country: None (occurrence: None)
  Receive Date: 20090406
  Receipt Date: 20090327
  Transmission Date: 20091009
  Serious: Yes (Other)
  Sender: FDA-Public Use
  Company Number: PHHY2009CR11612

PATIENT
  Age: 74 Year
  Sex: Male

DRUGS (5)
  1. DIOVAN HCT [Suspect]
     Dosage: 160/25 MG PER DAY
     Route: 048
  2. CRESTOR [Concomitant]
     Indication: HYPERCHOLESTEROLAEMIA
     Dosage: 10 MG, UNK
     Route: 048
  3. TILAZEM ^ELAN^ [Concomitant]
     Dosage: 180 MG, UNK
     Route: 048
  4. ASPIRIN [Concomitant]
  5. ZOPICLONE [Concomitant]

REACTIONS (5)
  - ARTERIAL OCCLUSIVE DISEASE [None]
  - CARDIOVASCULAR DISORDER [None]
  - CORONARY ARTERY DISEASE [None]
  - EXERCISE ELECTROCARDIOGRAM [None]
  - STRESS ECHOCARDIOGRAM [None]
